FAERS Safety Report 21386069 (Version 1)
Quarter: 2022Q3

REPORT INFORMATION
  Report Type: Spontaneous
  Country: US (occurrence: US)
  Receive Date: 20220928
  Receipt Date: 20220928
  Transmission Date: 20221026
  Serious: Yes (Disabling)
  Sender: FDA-Public Use
  Company Number: US-SA-SAC20220927000156

PATIENT
  Age: 72 Year
  Sex: Female

DRUGS (8)
  1. AUBAGIO [Suspect]
     Active Substance: TERIFLUNOMIDE
     Indication: Relapsing-remitting multiple sclerosis
     Dosage: UNK
     Route: 065
  2. ASPIRIN [Concomitant]
     Active Substance: ASPIRIN
     Dosage: ASPIRIN ADULT LOW DOSE
  3. ESTRIOL [Concomitant]
     Active Substance: ESTRIOL
     Dosage: UNK, QD
  4. GABAPENTIN [Concomitant]
     Active Substance: GABAPENTIN
     Dosage: UNK, QD
  5. METOPROLOL SUCCINATE [Concomitant]
     Active Substance: METOPROLOL SUCCINATE
     Dosage: UNK, QD
  6. SYNTHROID [Concomitant]
     Active Substance: LEVOTHYROXINE SODIUM
  7. VITAMIN D3 [Concomitant]
     Active Substance: CHOLECALCIFEROL
     Dosage: UNK
  8. ZOLOFT [Concomitant]
     Active Substance: SERTRALINE HYDROCHLORIDE
     Dosage: UNK, QD

REACTIONS (10)
  - Gait disturbance [Unknown]
  - Tremor [Unknown]
  - Feeling abnormal [Unknown]
  - Initial insomnia [Unknown]
  - Incontinence [Unknown]
  - Disturbance in attention [Unknown]
  - Depressed mood [Unknown]
  - Pain in extremity [Unknown]
  - Diarrhoea [Unknown]
  - Paraesthesia [Unknown]
